FAERS Safety Report 19705108 (Version 1)
Quarter: 2021Q3

REPORT INFORMATION
  Report Type: Spontaneous
  Country: US (occurrence: US)
  Receive Date: 20210814
  Receipt Date: 20210814
  Transmission Date: 20211014
  Serious: Yes (Hospitalization)
  Sender: FDA-Public Use
  Company Number: None

PATIENT
  Age: 73 Year
  Sex: Female
  Weight: 79.8 kg

DRUGS (1)
  1. ARIMIDEX [Suspect]
     Active Substance: ANASTROZOLE
     Dates: end: 20161227

REACTIONS (2)
  - COVID-19 pneumonia [None]
  - SARS-CoV-2 test positive [None]

NARRATIVE: CASE EVENT DATE: 20210809
